FAERS Safety Report 24558759 (Version 1)
Quarter: 2024Q4

REPORT INFORMATION
  Report Type: Report from Study
  Country: CN (occurrence: CN)
  Receive Date: 20241029
  Receipt Date: 20241029
  Transmission Date: 20250115
  Serious: Yes (Other)
  Sender: JOHNSON AND JOHNSON
  Company Number: CN-JNJFOC-20241059190

PATIENT

DRUGS (2)
  1. REMICADE [Suspect]
     Active Substance: INFLIXIMAB
     Indication: Colitis ulcerative
     Dosage: THREE PATIENTS RECEIVED DOSE ESCALATION, AND TWO PATIENTS RECEIVED BOTH DOSE ESCALATION AND INTERVAL
     Route: 041
  2. REMICADE [Suspect]
     Active Substance: INFLIXIMAB
     Route: 041

REACTIONS (6)
  - Clostridium difficile infection [Unknown]
  - Anaphylactic reaction [Unknown]
  - Respiratory symptom [Unknown]
  - Cytomegalovirus infection [Unknown]
  - Therapeutic response decreased [Unknown]
  - Off label use [Unknown]
